FAERS Safety Report 8577364-0 (Version None)
Quarter: 2012Q3

REPORT INFORMATION
  Report Type: 
  Country: None (occurrence: None)
  Receive Date: 20120807
  Receipt Date: 20120730
  Transmission Date: 20120928
  Serious: Yes (Hospitalization, Disabling, Other)
  Sender: FDA-Public Use
  Company Number: US-009507513-1108USA00181

PATIENT

DRUGS (5)
  1. ZYRTEC [Concomitant]
     Indication: SEASONAL ALLERGY
  2. ALENDRONATE SODIUM [Suspect]
     Indication: OSTEOPOROSIS
     Dosage: 70 MG, UNK
     Route: 048
     Dates: start: 20080218
  3. FOSAMAX [Suspect]
     Indication: OSTEOPOROSIS
     Dosage: 70 MG, UNK
     Route: 048
     Dates: start: 20000101, end: 20090701
  4. CYANOCOBALAMIN [Concomitant]
  5. MULTI-VITAMINS [Concomitant]
     Dosage: UNK UNK, QD

REACTIONS (47)
  - ASPARTATE AMINOTRANSFERASE INCREASED [None]
  - OSTEOPOROSIS [None]
  - LOW TURNOVER OSTEOPATHY [None]
  - NOCTURIA [None]
  - CHRONIC OBSTRUCTIVE PULMONARY DISEASE [None]
  - SINUS CONGESTION [None]
  - PNEUMONIA [None]
  - BLOOD CHOLESTEROL INCREASED [None]
  - TOOTH DISORDER [None]
  - INJURY [None]
  - IRON DEFICIENCY ANAEMIA [None]
  - GASTRITIS [None]
  - CONSTIPATION [None]
  - FEMUR FRACTURE [None]
  - HYPOXIC-ISCHAEMIC ENCEPHALOPATHY [None]
  - VERTEBRAL WEDGING [None]
  - INTERSTITIAL LUNG DISEASE [None]
  - FLUID RETENTION [None]
  - NEUROPATHY PERIPHERAL [None]
  - EAR PAIN [None]
  - SKIN CANCER [None]
  - CARDIAC FAILURE CONGESTIVE [None]
  - SPINAL COMPRESSION FRACTURE [None]
  - ADVERSE EVENT [None]
  - CATARACT [None]
  - ANGINA PECTORIS [None]
  - GASTROOESOPHAGEAL REFLUX DISEASE [None]
  - SPINAL CORD COMPRESSION [None]
  - FALL [None]
  - OEDEMA PERIPHERAL [None]
  - CALCIUM DEFICIENCY [None]
  - STERNAL FRACTURE [None]
  - WOUND [None]
  - LIPOMA [None]
  - SUPRAVENTRICULAR TACHYCARDIA [None]
  - FATIGUE [None]
  - COUGH [None]
  - UPPER RESPIRATORY TRACT INFECTION [None]
  - STRESS FRACTURE [None]
  - CORONARY ARTERY DISEASE [None]
  - TREATMENT FAILURE [None]
  - ASTHMA [None]
  - ANXIETY [None]
  - CEREBRAL ATROPHY [None]
  - TRIGGER FINGER [None]
  - OSTEOARTHRITIS [None]
  - MUSCLE SPASMS [None]
